FAERS Safety Report 8784267 (Version 1)
Quarter: 2012Q4

REPORT INFORMATION
  Report Type: Spontaneous
  Country: DK (occurrence: None)
  Receive Date: 20120830
  Receipt Date: 20120830
  Transmission Date: 20130627
  Serious: Yes (Disabling)
  Sender: FDA-Public Use
  Company Number: 2012MA010484

PATIENT
  Age: 70 Year
  Sex: Female

DRUGS (3)
  1. SERTRALINE [Suspect]
     Indication: DEPRESSION
     Route: 048
     Dates: start: 201010, end: 201206
  2. SIMVASTATIN [Concomitant]
  3. ALDENDRONAT ARROW [Concomitant]

REACTIONS (4)
  - Neuropathy peripheral [None]
  - Gait disturbance [None]
  - Balance disorder [None]
  - Parkinsonian gait [None]
